FAERS Safety Report 4661958-9 (Version None)
Quarter: 2005Q2

REPORT INFORMATION
  Report Type: 
  Country: None (occurrence: None)
  Receive Date: 20050511
  Receipt Date: 20050511
  Transmission Date: 20051028
  Serious: Yes (Hospitalization)
  Sender: FDA-Public Use
  Company Number: None

PATIENT
  Age: 61 Year
  Sex: Male

DRUGS (9)
  1. HYDROCHLOROTHIAZIDE [Suspect]
     Indication: HYPERTENSION
     Dosage: 25 MG QD
     Dates: start: 20010130
  2. METOPROLOL [Concomitant]
  3. TYLENEL #3 [Concomitant]
  4. ASPIRIN [Concomitant]
  5. PLAVIX [Concomitant]
  6. FELODIPINE [Concomitant]
  7. FOSINOPRIL [Concomitant]
  8. METFORMIN [Concomitant]
  9. ZOCOR [Concomitant]

REACTIONS (1)
  - SYNCOPE [None]
